FAERS Safety Report 7522129-1 (Version None)
Quarter: 2011Q2

REPORT INFORMATION
  Report Type: 
  Country: None (occurrence: None)
  Receive Date: 20110603
  Receipt Date: 20110523
  Transmission Date: 20111010
  Serious: Yes (Hospitalization, Other)
  Sender: FDA-Public Use
  Company Number: US-AMGEN-USASP2011020469

PATIENT
  Age: 84 Year
  Sex: Female

DRUGS (1)
  1. EPOGEN [Suspect]
     Indication: RENAL FAILURE CHRONIC
     Dosage: UNK UNK, 3 TIMES/WK
     Route: 042
     Dates: start: 20040101

REACTIONS (3)
  - GASTROINTESTINAL PERFORATION [None]
  - SMALL INTESTINE ULCER [None]
  - BACK PAIN [None]
